FAERS Safety Report 15359222 (Version 2)
Quarter: 2018Q3

REPORT INFORMATION
  Report Type: Spontaneous
  Country: LK (occurrence: LK)
  Receive Date: 20180907
  Receipt Date: 20180907
  Transmission Date: 20181010
  Serious: Yes (Hospitalization, Other)
  Sender: FDA-Public Use
  Company Number: PHHY2018LK086881

PATIENT
  Age: 30 Year
  Sex: Male

DRUGS (3)
  1. BISOPROLOL [Concomitant]
     Active Substance: BISOPROLOL
     Indication: PRODUCT USED FOR UNKNOWN INDICATION
     Dosage: UNK
     Route: 065
  2. PREDNISOLONE. [Suspect]
     Active Substance: PREDNISOLONE
     Indication: PRODUCT USED FOR UNKNOWN INDICATION
     Dosage: 0.5 MG/KG, QD
     Route: 065
     Dates: end: 2017
  3. PRAZOSIN. [Concomitant]
     Active Substance: PRAZOSIN
     Indication: PRODUCT USED FOR UNKNOWN INDICATION
     Dosage: UNK
     Route: 065

REACTIONS (16)
  - Bronchopulmonary aspergillosis [Recovering/Resolving]
  - Embolism [Recovering/Resolving]
  - Spleen tuberculosis [Recovering/Resolving]
  - Pyrexia [Recovered/Resolved]
  - Facial paralysis [Recovered/Resolved]
  - Blood immunoglobulin A decreased [Recovered/Resolved]
  - Cough [Unknown]
  - Dyspnoea exertional [Unknown]
  - T-lymphocyte count abnormal [Recovered/Resolved]
  - Granuloma [Recovering/Resolving]
  - Immunodeficiency [Recovered/Resolved]
  - B-lymphocyte count decreased [Recovered/Resolved]
  - Splenic abscess [Recovering/Resolving]
  - Disseminated tuberculosis [Recovering/Resolving]
  - Cytomegalovirus infection [Recovered/Resolved]
  - Blood immunoglobulin M decreased [Recovered/Resolved]
